FAERS Safety Report 20508871 (Version 1)
Quarter: 2022Q1

REPORT INFORMATION
  Report Type: Spontaneous
  Country: AU (occurrence: AU)
  Receive Date: 20220223
  Receipt Date: 20220223
  Transmission Date: 20220424
  Serious: Yes (Death)
  Sender: FDA-Public Use
  Company Number: AU-PFIZER INC-202200276755

PATIENT
  Age: 52 Year
  Sex: Female

DRUGS (5)
  1. PREGABALIN [Suspect]
     Active Substance: PREGABALIN
  2. METHADONE [Suspect]
     Active Substance: METHADONE HYDROCHLORIDE
     Indication: Drug dependence
     Dosage: 40 MG, DAILY
  3. VALPROIC ACID [Suspect]
     Active Substance: VALPROIC ACID
     Indication: Pain management
  4. CLONAZEPAM [Suspect]
     Active Substance: CLONAZEPAM
  5. TEMAZEPAM [Suspect]
     Active Substance: TEMAZEPAM

REACTIONS (2)
  - Toxicity to various agents [Fatal]
  - Prescribed overdose [Fatal]
